FAERS Safety Report 8179105-8 (Version None)
Quarter: 2012Q1

REPORT INFORMATION
  Report Type: 
  Country: None (occurrence: None)
  Receive Date: 20120227
  Receipt Date: 20120216
  Transmission Date: 20120608
  Serious: Yes (Other)
  Sender: FDA-Public Use
  Company Number: 1000027806

PATIENT
  Age: 18 Year
  Sex: Female
  Weight: 73 kg

DRUGS (11)
  1. DESLORATADINE [Concomitant]
  2. NASONEX (MOMETASONE FUROATE) (MOMETASONE FUROATE) [Concomitant]
  3. ESCITALOPRAM OXALATE [Suspect]
     Indication: DEPRESSION
     Dosage: 10 MG (10 MG, 1 IN 1 D),ORAL, 10 MG (10 MG, 1 IN 1 D), ORAL
     Route: 048
     Dates: start: 20110929, end: 20111018
  4. ESCITALOPRAM OXALATE [Suspect]
     Indication: DEPRESSION
     Dosage: 10 MG (10 MG, 1 IN 1 D),ORAL, 10 MG (10 MG, 1 IN 1 D), ORAL
     Route: 048
     Dates: start: 20111125
  5. RUBOZINC (ZINC GLUCONATE) (ZINC GLUCONATE) [Concomitant]
  6. ACETAMINOPHEN [Suspect]
     Indication: PYREXIA
     Dosage: 2000 MG (500 MG, 4 IN 1 D), ORAL, 2000 MG (500 MG, 4 IN 1 D), ORAL
     Route: 048
     Dates: start: 20110920, end: 20111018
  7. ACETAMINOPHEN [Suspect]
     Indication: PAIN
     Dosage: 2000 MG (500 MG, 4 IN 1 D), ORAL, 2000 MG (500 MG, 4 IN 1 D), ORAL
     Route: 048
     Dates: start: 20110920, end: 20111018
  8. ACETAMINOPHEN [Suspect]
     Indication: PYREXIA
     Dosage: 2000 MG (500 MG, 4 IN 1 D), ORAL, 2000 MG (500 MG, 4 IN 1 D), ORAL
     Route: 048
     Dates: start: 20111125
  9. ACETAMINOPHEN [Suspect]
     Indication: PAIN
     Dosage: 2000 MG (500 MG, 4 IN 1 D), ORAL, 2000 MG (500 MG, 4 IN 1 D), ORAL
     Route: 048
     Dates: start: 20111125
  10. JASMINE (ETHINYL ESTRADIOL, DROSPERINONE) [Suspect]
     Indication: CONTRACEPTION
     Dosage: 1 DF (1 DOSAGE FORMS, 1 IN 1 D), ORAL
     Route: 048
     Dates: start: 20090417
  11. AMOXICILLIN [Concomitant]

REACTIONS (15)
  - ASPARTATE AMINOTRANSFERASE INCREASED [None]
  - BLOOD BILIRUBIN INCREASED [None]
  - GASTROINTESTINAL DISORDER [None]
  - ALANINE AMINOTRANSFERASE INCREASED [None]
  - ABDOMINAL PAIN [None]
  - TREATMENT NONCOMPLIANCE [None]
  - C-REACTIVE PROTEIN INCREASED [None]
  - VIRAL INFECTION [None]
  - BILIRUBIN CONJUGATED INCREASED [None]
  - DRUG INTERACTION [None]
  - NAUSEA [None]
  - BLOOD BILIRUBIN UNCONJUGATED INCREASED [None]
  - LIVER INJURY [None]
  - FATIGUE [None]
  - PLATELET COUNT DECREASED [None]
